FAERS Safety Report 7582620-9 (Version None)
Quarter: 2011Q2

REPORT INFORMATION
  Report Type: 
  Country: None (occurrence: None)
  Receive Date: 20110630
  Receipt Date: 20110618
  Transmission Date: 20111010
  Serious: Yes (Disabling)
  Sender: FDA-Public Use
  Company Number: US-ELI_LILLY_AND_COMPANY-US201106006553

PATIENT
  Sex: Male

DRUGS (1)
  1. HUMATROPE [Suspect]
     Dosage: UNK, UNKNOWN
     Route: 065

REACTIONS (12)
  - OSTEOPOROSIS [None]
  - PAIN [None]
  - FALL [None]
  - SURGERY [None]
  - DYSSTASIA [None]
  - SCOLIOSIS [None]
  - MALAISE [None]
  - BODY HEIGHT DECREASED [None]
  - BLOOD TESTOSTERONE INCREASED [None]
  - INTERVERTEBRAL DISC DISORDER [None]
  - CHOKING [None]
  - THYROID DISORDER [None]
